FAERS Safety Report 20032624 (Version 1)
Quarter: 2021Q4

REPORT INFORMATION
  Report Type: Spontaneous
  Country: JP (occurrence: JP)
  Receive Date: 20211103
  Receipt Date: 20211103
  Transmission Date: 20220304
  Serious: Yes (Hospitalization, Other)
  Sender: FDA-Public Use
  Company Number: JP-JNJFOC-20211061412

PATIENT
  Age: 41 Year
  Sex: Female

DRUGS (19)
  1. UPTRAVI [Suspect]
     Active Substance: SELEXIPAG
     Indication: Pulmonary hypertension
     Route: 048
  2. UPTRAVI [Suspect]
     Active Substance: SELEXIPAG
     Dosage: (2.8 MG/24 HOURS)
     Route: 048
  3. UPTRAVI [Suspect]
     Active Substance: SELEXIPAG
     Dosage: (2.4 MG/24 HOURS)
     Route: 048
  4. UPTRAVI [Suspect]
     Active Substance: SELEXIPAG
     Dosage: (2.0 MG/24 HOURS)
     Route: 048
  5. UPTRAVI [Suspect]
     Active Substance: SELEXIPAG
     Dosage: (2.4 MG/24 HOURS)
     Route: 048
  6. UPTRAVI [Suspect]
     Active Substance: SELEXIPAG
     Dosage: (2.8 MG/24 HOURS)
     Route: 048
  7. UPTRAVI [Suspect]
     Active Substance: SELEXIPAG
     Dosage: (3.2 MG/24 HOURS)
     Route: 048
  8. OPSUMIT [Suspect]
     Active Substance: MACITENTAN
     Indication: Pulmonary hypertension
     Dosage: (10 MG/24 HOURS)
     Route: 048
  9. TRACLEER [Suspect]
     Active Substance: BOSENTAN
     Indication: Pulmonary hypertension
     Dosage: (250 MG/24 HOURS)
     Route: 048
  10. ADCIRCA [Suspect]
     Active Substance: TADALAFIL
     Indication: Pulmonary hypertension
     Dosage: (20 MG/24 HOURS)
     Route: 048
  11. PREDNISOLONE [Concomitant]
     Active Substance: PREDNISOLONE
  12. PREDNISOLONE [Concomitant]
     Active Substance: PREDNISOLONE
  13. PREDNISOLONE [Concomitant]
     Active Substance: PREDNISOLONE
  14. PREDNISOLONE [Concomitant]
     Active Substance: PREDNISOLONE
  15. IMATINIB [IMATINIB MESILATE] [Concomitant]
  16. IMATINIB [IMATINIB MESILATE] [Concomitant]
  17. IMATINIB [IMATINIB MESILATE] [Concomitant]
  18. DILTIAZEM HYDROCHLORIDE [Concomitant]
     Active Substance: DILTIAZEM HYDROCHLORIDE
  19. DILTIAZEM HYDROCHLORIDE [Concomitant]
     Active Substance: DILTIAZEM HYDROCHLORIDE

REACTIONS (15)
  - Atypical pneumonia [Unknown]
  - Interstitial lung disease [Unknown]
  - Chronic myeloid leukaemia [Unknown]
  - Coronary artery stenosis [Unknown]
  - Prinzmetal angina [Unknown]
  - Dyspnoea [Unknown]
  - Enteritis [Unknown]
  - Herpes zoster [Unknown]
  - Pyrexia [Unknown]
  - Viral infection [Unknown]
  - Arthralgia [Unknown]
  - Alopecia [Unknown]
  - Blood pressure decreased [Unknown]
  - Chest pain [Unknown]
  - Inflammation [Unknown]
